FAERS Safety Report 7985755-1 (Version None)
Quarter: 2011Q4

REPORT INFORMATION
  Report Type: 
  Country: None (occurrence: None)
  Receive Date: 20111214
  Receipt Date: 20111121
  Transmission Date: 20120403
  Serious: Yes (Hospitalization)
  Sender: FDA-Public Use
  Company Number: 2011SP052568

PATIENT
  Age: 52 Year
  Sex: Male

DRUGS (1)
  1. PEGETRON (PEGYLATED INTERFERON ALFA-2B W/RIBAVIRIN) [Suspect]
     Indication: HEPATITIS C
     Dosage: 150 MCG, SC
     Route: 058

REACTIONS (3)
  - HEADACHE [None]
  - THROMBOSIS [None]
  - PNEUMONIA [None]
